FAERS Safety Report 25105534 (Version 1)
Quarter: 2025Q1

REPORT INFORMATION
  Report Type: Report from Study
  Country: US (occurrence: US)
  Receive Date: 20250321
  Receipt Date: 20250321
  Transmission Date: 20250408
  Serious: No
  Sender: ESPERION THERAPEUTICS
  Company Number: US-ESPERIONTHERAPEUTICS-2024USA00696

PATIENT
  Age: 73 Year
  Sex: Male

DRUGS (3)
  1. BEMPEDOIC ACID [Suspect]
     Active Substance: BEMPEDOIC ACID
     Indication: Product used for unknown indication
     Route: 065
     Dates: end: 20240411
  2. BEMPEDOIC ACID [Suspect]
     Active Substance: BEMPEDOIC ACID
     Route: 065
     Dates: start: 20240413
  3. LISINOPRIL [Concomitant]
     Active Substance: LISINOPRIL
     Indication: Blood pressure increased
     Route: 065

REACTIONS (3)
  - Hypertension [Unknown]
  - Blood pressure increased [Unknown]
  - Tendon rupture [Unknown]

NARRATIVE: CASE EVENT DATE: 20240401
